FAERS Safety Report 5801490-X (Version None)
Quarter: 2008Q3

REPORT INFORMATION
  Report Type: 
  Country: None (occurrence: None)
  Receive Date: 20080707
  Receipt Date: 20080625
  Transmission Date: 20090109
  Serious: Yes (Other)
  Sender: FDA-Public Use
  Company Number: US-ROCHE-572581

PATIENT
  Sex: Male

DRUGS (2)
  1. ISOTRETINOIN [Suspect]
     Indication: ACNE
     Dosage: THE PATIENT WAS DISPENSED ACCUTANE 40 MG CAPSULE ON 11 JUNE 2008.
     Route: 065
  2. CLARAVIS [Suspect]
     Indication: ACNE
     Dosage: THE PATIENT WAS DISPENSED CLARAVIS 40 MG CAPS ON 3 APR 2008 AND 30 MG CAPS ON 6 MAY 2008.
     Route: 065

REACTIONS (2)
  - DEPRESSION [None]
  - SUICIDAL IDEATION [None]
